FAERS Safety Report 17929262 (Version 1)
Quarter: 2020Q2

REPORT INFORMATION
  Report Type: Report from Study
  Country: US (occurrence: US)
  Receive Date: 20200623
  Receipt Date: 20200623
  Transmission Date: 20200714
  Serious: Yes (Hospitalization)
  Sender: FDA-Public Use
  Company Number: US-TEVA-2020-US-1790299

PATIENT
  Age: 39 Year
  Sex: Male

DRUGS (1)
  1. METFORMIN [Suspect]
     Active Substance: METFORMIN HYDROCHLORIDE
     Dosage: INGESTED 15G
     Route: 048

REACTIONS (3)
  - Hyperkalaemia [Unknown]
  - Lactic acidosis [Recovered/Resolved]
  - Intentional overdose [Unknown]
